FAERS Safety Report 17835988 (Version 1)
Quarter: 2020Q2

REPORT INFORMATION
  Report Type: Spontaneous
  Country: US (occurrence: US)
  Receive Date: 20200528
  Receipt Date: 20200528
  Transmission Date: 20200714
  Serious: Yes (Other)
  Sender: FDA-Public Use
  Company Number: US-PFIZER INC-2020208275

PATIENT
  Sex: Female

DRUGS (4)
  1. GABAPENTIN. [Suspect]
     Active Substance: GABAPENTIN
     Indication: NEURALGIA
     Dosage: 3000 MG, DAILY (THAT SHE WAS ON A TOTAL OF 3000MG PER DAY)
  2. GABAPENTIN. [Suspect]
     Active Substance: GABAPENTIN
     Dosage: 300 MG, 2X/DAY
  3. GABAPENTIN. [Suspect]
     Active Substance: GABAPENTIN
     Dosage: 1500 MG, DAILY (WEANED HER TO 1500MG PER DAY)
  4. GABAPENTIN. [Suspect]
     Active Substance: GABAPENTIN
     Indication: EPILEPSY
     Dosage: 800 MG, 3X/DAY

REACTIONS (7)
  - Partial seizures [Unknown]
  - Hallucination, visual [Unknown]
  - Anxiety [Not Recovered/Not Resolved]
  - Overdose [Unknown]
  - Thinking abnormal [Unknown]
  - Depression [Unknown]
  - Nausea [Unknown]
